FAERS Safety Report 13676622 (Version 1)
Quarter: 2017Q2

REPORT INFORMATION
  Report Type: Spontaneous
  Country: US (occurrence: US)
  Receive Date: 20170622
  Receipt Date: 20170622
  Transmission Date: 20170830
  Serious: Yes (Hospitalization)
  Sender: FDA-Public Use
  Company Number: US-PFIZER INC-2017260343

PATIENT
  Age: 62 Year
  Sex: Male
  Weight: 138.3 kg

DRUGS (10)
  1. METFORMIN [Concomitant]
     Active Substance: METFORMIN HYDROCHLORIDE
     Indication: DIABETES MELLITUS
     Dosage: 500 MG, 2X/DAY
     Route: 048
  2. BRILINTA [Interacting]
     Active Substance: TICAGRELOR
     Indication: BLOOD DISORDER
     Dosage: 90 MG, 2X/DAY
     Route: 048
     Dates: start: 201705
  3. AMLODIPINE [Concomitant]
     Active Substance: AMLODIPINE BESYLATE
     Indication: ANGINA PECTORIS
     Dosage: 5 MG, 1X/DAY
     Route: 048
  4. AMLODIPINE [Concomitant]
     Active Substance: AMLODIPINE BESYLATE
     Indication: HYPERTENSION
  5. BRILINTA [Interacting]
     Active Substance: TICAGRELOR
     Indication: PLATELET DISORDER
  6. LOSARTAN. [Concomitant]
     Active Substance: LOSARTAN
     Indication: HYPERTENSION
     Dosage: 100 MG, DAILY
     Route: 048
  7. VIAGRA [Suspect]
     Active Substance: SILDENAFIL CITRATE
     Indication: SEXUAL DYSFUNCTION
     Dosage: 50 MG, AS NEEDED (100MG ONE HALF OF A TABLET \ ONE HALF OF A 100 MG TABLET)
     Route: 048
  8. ATENOLOL. [Concomitant]
     Active Substance: ATENOLOL
     Indication: HYPERTENSION
     Dosage: 12.5 MG, 1X/DAY (ONE TABLET BY MOUTH ONCE A DAY)
     Route: 048
  9. CHLORTHALIDONE. [Concomitant]
     Active Substance: CHLORTHALIDONE
     Indication: DIURETIC THERAPY
     Dosage: 25 MG, 1X/DAY
     Route: 048
  10. GLYBURIDE. [Concomitant]
     Active Substance: GLYBURIDE
     Indication: DIABETES MELLITUS
     Dosage: UNK (ONE HALF OF A 2.5MG TABLET/WHICH HE REFERRED TO AS 1.5MG)
     Route: 048

REACTIONS (4)
  - Drug interaction [Recovered/Resolved]
  - Expired product administered [Recovered/Resolved]
  - Dyspnoea [Unknown]
  - Blood pressure increased [Recovered/Resolved]

NARRATIVE: CASE EVENT DATE: 20170609
